FAERS Safety Report 18399086 (Version 1)
Quarter: 2020Q4

REPORT INFORMATION
  Report Type: Spontaneous
  Country: US (occurrence: US)
  Receive Date: 20201019
  Receipt Date: 20201019
  Transmission Date: 20210114
  Serious: Yes (Hospitalization)
  Sender: FDA-Public Use
  Company Number: US-SA-2020SA069852

PATIENT

DRUGS (1)
  1. DUPIXENT [Suspect]
     Active Substance: DUPILUMAB
     Indication: DERMATITIS ATOPIC
     Dosage: 300 MG, QOW
     Route: 058
     Dates: start: 20190523

REACTIONS (5)
  - Hospitalisation [Unknown]
  - Erythema [Unknown]
  - Dermatitis [Unknown]
  - Hyperaesthesia [Unknown]
  - Dermatitis atopic [Unknown]
